FAERS Safety Report 6161089-5 (Version None)
Quarter: 2009Q2

REPORT INFORMATION
  Report Type: 
  Country: None (occurrence: None)
  Receive Date: 20090421
  Receipt Date: 20070529
  Transmission Date: 20091009
  Serious: Yes (Hospitalization, Other)
  Sender: FDA-Public Use
  Company Number: US-ASTRAZENECA-2006UW22227

PATIENT
  Age: 17775 Day
  Sex: Male
  Weight: 125 kg

DRUGS (44)
  1. SEROQUEL [Suspect]
     Indication: BIPOLAR DISORDER
     Route: 048
     Dates: start: 20040727
  2. SEROQUEL [Suspect]
     Indication: DELUSION
     Route: 048
     Dates: start: 20040727
  3. SEROQUEL [Suspect]
     Indication: PARANOIA
     Route: 048
     Dates: start: 20040727
  4. SEROQUEL [Suspect]
     Indication: DELUSIONAL DISORDER, PERSECUTORY TYPE
     Route: 048
     Dates: start: 20040727
  5. SEROQUEL [Suspect]
     Indication: HALLUCINATION, AUDITORY
     Route: 048
     Dates: start: 20040727
  6. SEROQUEL [Suspect]
     Dosage: 200-400MG
     Route: 048
     Dates: start: 20040615
  7. SEROQUEL [Suspect]
     Dosage: 200-400MG
     Route: 048
     Dates: start: 20040615
  8. SEROQUEL [Suspect]
     Dosage: 200-400MG
     Route: 048
     Dates: start: 20040615
  9. SEROQUEL [Suspect]
     Dosage: 200-400MG
     Route: 048
     Dates: start: 20040615
  10. SEROQUEL [Suspect]
     Dosage: 200-400MG
     Route: 048
     Dates: start: 20040615
  11. UNSPECIFIED PSYCHIATRIC MEDICATION [Concomitant]
  12. COGENTIN [Concomitant]
  13. DEPAKOTE [Concomitant]
  14. RISPERDAL [Concomitant]
  15. TRAZODONE [Concomitant]
  16. NORVASC [Concomitant]
  17. SPIRONOLACTONE [Concomitant]
  18. ATIVAN [Concomitant]
  19. VALPROIC ACID [Concomitant]
  20. BENADRYL [Concomitant]
  21. MILK OF MAGNESIA [Concomitant]
  22. ASPIRIN [Concomitant]
  23. PRILOSEC [Concomitant]
  24. ALLOPURINOL [Concomitant]
  25. CHLORPHENTERMINE 65MG TAB [Concomitant]
  26. OXYBUTYNIN CHLORIDE [Concomitant]
  27. IBUPROFEN [Concomitant]
  28. PREDNISONE [Concomitant]
  29. FLUNISOLIDE [Concomitant]
  30. KLONOPIN [Concomitant]
  31. NITROGLYCERIN [Concomitant]
  32. POTASSIUM CHLORIDE [Concomitant]
  33. ENALAPRIL [Concomitant]
  34. ZIPRASIDONE HCL [Concomitant]
  35. TYLENOL [Concomitant]
  36. GUAIFENESIN [Concomitant]
  37. METOCLOPRAMIDE [Concomitant]
  38. COZAAR [Concomitant]
  39. COLCHICINE [Concomitant]
  40. INDOMETHACIN [Concomitant]
  41. VERAPAMIL [Concomitant]
  42. HYOSCYAMINE SULFATE [Concomitant]
  43. ATENOLOL [Concomitant]
  44. BUTALBITAL/CAFFEINE/PARACETAMOL [Concomitant]

REACTIONS (15)
  - BACK INJURY [None]
  - BIPOLAR I DISORDER [None]
  - BRADYCARDIA [None]
  - DIABETES MELLITUS [None]
  - DIABETIC COMA [None]
  - DIARRHOEA [None]
  - DRY MOUTH [None]
  - HEAD INJURY [None]
  - JOINT SPRAIN [None]
  - JOINT SWELLING [None]
  - OEDEMA PERIPHERAL [None]
  - PYREXIA [None]
  - ROAD TRAFFIC ACCIDENT [None]
  - SWELLING FACE [None]
  - UPPER RESPIRATORY TRACT INFECTION [None]
